FAERS Safety Report 4688310-4 (Version None)
Quarter: 2005Q2

REPORT INFORMATION
  Report Type: 
  Country: None (occurrence: None)
  Receive Date: 20050610
  Receipt Date: 20050601
  Transmission Date: 20051028
  Serious: Yes (Other)
  Sender: FDA-Public Use
  Company Number: IL-MERCK-0506ISR00001

PATIENT
  Age: 55 Year
  Sex: Male

DRUGS (5)
  1. VIOXX [Suspect]
     Route: 048
     Dates: start: 20010101, end: 20040901
  2. LIDOCAINE AND TRIBENOSIDE [Concomitant]
     Route: 065
  3. LIDOCAINE AND TRIBENOSIDE [Concomitant]
     Route: 065
  4. DICLOFENAC DIETHYLAMINE [Concomitant]
     Route: 065
  5. NUTRITIONAL SUPPLEMENTS [Concomitant]
     Route: 065

REACTIONS (1)
  - MYOCARDIAL INFARCTION [None]
